FAERS Safety Report 4568276-8 (Version None)
Quarter: 2005Q2

REPORT INFORMATION
  Report Type: 
  Country: None (occurrence: None)
  Receive Date: 20050131
  Receipt Date: 20040616
  Transmission Date: 20051028
  Serious: Yes (Death, Hospitalization)
  Sender: FDA-Public Use
  Company Number: MSTR-NO-0204C-0085

PATIENT
  Age: 63 Year
  Sex: Male
  Weight: 65 kg

DRUGS (6)
  1. METASTRON [Suspect]
     Indication: BONE PAIN
     Dosage: 2.0 MBQ/KG, SINGLE DOSE, I.V.
     Route: 042
     Dates: start: 20020326, end: 20020326
  2. METASTRON [Suspect]
     Indication: METASTATIC PAIN
     Dosage: 2.0 MBQ/KG, SINGLE DOSE, I.V.
     Route: 042
     Dates: start: 20020326, end: 20020326
  3. GLUCOSE, ACETATED RINGER'S SOLUTION [Concomitant]
  4. METOCLOPRAMIDE [Concomitant]
  5. FLURBIPROFEN AXETIL [Concomitant]
  6. DEXAMETHASONE [Concomitant]

REACTIONS (8)
  - ANAEMIA [None]
  - ANOREXIA [None]
  - CONDITION AGGRAVATED [None]
  - LUNG NEOPLASM MALIGNANT [None]
  - MALIGNANT NEOPLASM PROGRESSION [None]
  - NAUSEA [None]
  - PAIN [None]
  - VOMITING [None]
